FAERS Safety Report 9700171 (Version 1)
Quarter: 2013Q4

REPORT INFORMATION
  Report Type: Spontaneous
  Country: US (occurrence: None)
  Receive Date: 20131118
  Receipt Date: 20131118
  Transmission Date: 20140711
  Serious: Yes (Life-Threatening, Hospitalization)
  Sender: FDA-Public Use
  Company Number: 2013P1020864

PATIENT
  Age: 45 Year
  Sex: Female

DRUGS (2)
  1. CITALOPRAM [Suspect]
  2. QUININE [Suspect]

REACTIONS (6)
  - Convulsion [None]
  - Hypotension [None]
  - Electrocardiogram QRS complex prolonged [None]
  - Arrhythmia [None]
  - Cardiogenic shock [None]
  - Retinal toxicity [None]
